FAERS Safety Report 5673027-X (Version None)
Quarter: 2008Q1

REPORT INFORMATION
  Report Type: 
  Country: None (occurrence: None)
  Receive Date: 20080319
  Receipt Date: 20080211
  Transmission Date: 20080703
  Serious: No
  Sender: FDA-Public Use
  Company Number: US-ASTRAZENECA-2008UW02884

PATIENT
  Sex: Male

DRUGS (2)
  1. SYMBICORT [Suspect]
     Indication: COUGH
     Route: 055
  2. SYMBICORT [Suspect]
     Indication: BRONCHITIS
     Route: 055

REACTIONS (2)
  - NERVOUSNESS [None]
  - THROAT IRRITATION [None]
